FAERS Safety Report 6710012-0 (Version None)
Quarter: 2010Q2

REPORT INFORMATION
  Report Type: 
  Country: None (occurrence: None)
  Receive Date: 20100504
  Receipt Date: 20100423
  Transmission Date: 20101027
  Serious: Yes (Other)
  Sender: FDA-Public Use
  Company Number: JP-PFIZER INC-2010053481

PATIENT

DRUGS (2)
  1. ZITHROMAX [Suspect]
     Route: 048
  2. ASVERIN [Suspect]
     Route: 048

REACTIONS (1)
  - CHROMATURIA [None]
